FAERS Safety Report 13977091 (Version 1)
Quarter: 2017Q3

REPORT INFORMATION
  Report Type: Spontaneous
  Country: US (occurrence: US)
  Receive Date: 20170915
  Receipt Date: 20170915
  Transmission Date: 20171128
  Serious: No
  Sender: FDA-Public Use
  Company Number: US-ROCHE-725810

PATIENT
  Sex: Female

DRUGS (4)
  1. CYTOXAN [Concomitant]
     Active Substance: CYCLOPHOSPHAMIDE
     Dosage: DURATION 12 WEEKS
     Route: 065
  2. TAXOL [Suspect]
     Active Substance: PACLITAXEL
     Indication: BREAST CANCER
     Dosage: DURATION 10 WEEKS
     Route: 065
  3. ADRIAMYCIN [Concomitant]
     Active Substance: DOXORUBICIN HYDROCHLORIDE
     Dosage: DURATION 12 WEEKS
     Route: 065
  4. HERCEPTIN [Suspect]
     Active Substance: TRASTUZUMAB
     Indication: BREAST CANCER
     Dosage: LAST DOSE PRIOR TO SAE WAS ON 25 AUGUST 2010. DURATION 52 WEEKS
     Route: 065

REACTIONS (5)
  - Abdominal discomfort [Recovering/Resolving]
  - Muscle spasms [Unknown]
  - Vitamin D deficiency [Unknown]
  - Rash [Unknown]
  - Muscle spasms [Recovering/Resolving]
